FAERS Safety Report 8456270-6 (Version None)
Quarter: 2012Q2

REPORT INFORMATION
  Report Type: 
  Country: None (occurrence: None)
  Receive Date: 20120621
  Receipt Date: 20120615
  Transmission Date: 20120825
  Serious: No
  Sender: FDA-Public Use
  Company Number: US-BAYER-2012-060344

PATIENT

DRUGS (2)
  1. ALEVE (CAPLET) [Suspect]
     Route: 048
  2. PRESCRIPTION PILLS [Concomitant]

REACTIONS (2)
  - HEART RATE INCREASED [None]
  - EYE MOVEMENT DISORDER [None]
